FAERS Safety Report 24065199 (Version 1)
Quarter: 2024Q3

REPORT INFORMATION
  Report Type: Spontaneous
  Country: US (occurrence: US)
  Receive Date: 20240709
  Receipt Date: 20240709
  Transmission Date: 20241017
  Serious: No
  Sender: BRISTOL MYERS SQUIBB
  Company Number: US-BRISTOL-MYERS SQUIBB COMPANY-2024-108506

PATIENT
  Age: 65 Year
  Sex: Female
  Weight: 72.57 kg

DRUGS (2)
  1. SOTYKTU [Suspect]
     Active Substance: DEUCRAVACITINIB
     Indication: Psoriatic arthropathy
     Dosage: DOSE : 6 MG; FREQ : DAILY
     Route: 048
     Dates: start: 20240621
  2. SOTYKTU [Suspect]
     Active Substance: DEUCRAVACITINIB
     Indication: Psoriasis

REACTIONS (3)
  - Acne [Unknown]
  - Folliculitis [Unknown]
  - Condition aggravated [Unknown]
